FAERS Safety Report 22351025 (Version 1)
Quarter: 2023Q2

REPORT INFORMATION
  Report Type: Spontaneous
  Country: US (occurrence: None)
  Receive Date: 20230520
  Receipt Date: 20230520
  Transmission Date: 20230721
  Serious: Yes (Hospitalization)
  Sender: FDA-Public Use
  Company Number: None

PATIENT
  Age: 76 Year
  Sex: Male
  Weight: 72.12 kg

DRUGS (12)
  1. CAPECITABINE [Suspect]
     Active Substance: CAPECITABINE
     Indication: Bile duct cancer
     Dosage: FREQUENCY : TWICE A DAY;?
     Route: 048
     Dates: start: 202304
  2. ATORVASTATIN [Concomitant]
     Active Substance: ATORVASTATIN
  3. BENADRYL [Concomitant]
     Active Substance: DIPHENHYDRAMINE HYDROCHLORIDE
  4. BENZONATATE [Concomitant]
     Active Substance: BENZONATATE
  5. COLACE [Concomitant]
     Active Substance: DOCUSATE SODIUM
  6. ELIQUIS [Concomitant]
     Active Substance: APIXABAN
  7. ESCITALOPRAM [Concomitant]
     Active Substance: ESCITALOPRAM OXALATE
  8. MARINOL [Concomitant]
     Active Substance: DRONABINOL
  9. MELATONIN [Concomitant]
     Active Substance: MELATONIN
  10. METOCLOPRAMIDE [Concomitant]
     Active Substance: METOCLOPRAMIDE
  11. SENOKOT [Concomitant]
     Active Substance: SENNOSIDES
  12. TRAZODONE [Concomitant]
     Active Substance: TRAZODONE HYDROCHLORIDE

REACTIONS (2)
  - Thrombosis [None]
  - Treatment delayed [None]

NARRATIVE: CASE EVENT DATE: 20230517
